FAERS Safety Report 8545134-5 (Version None)
Quarter: 2012Q3

REPORT INFORMATION
  Report Type: 
  Country: None (occurrence: None)
  Receive Date: 20120727
  Receipt Date: 20120720
  Transmission Date: 20120928
  Serious: Yes (Other)
  Sender: FDA-Public Use
  Company Number: AR-ROCHE-1093008

PATIENT
  Sex: Female

DRUGS (4)
  1. LUCENTIS [Suspect]
     Route: 050
  2. LUCENTIS [Suspect]
     Indication: MACULOPATHY
     Route: 050
     Dates: start: 20110801
  3. LUCENTIS [Suspect]
     Route: 050
  4. LUCENTIS [Suspect]
     Dates: start: 20111001

REACTIONS (1)
  - VISUAL ACUITY REDUCED [None]
